FAERS Safety Report 6316268-0 (Version None)
Quarter: 2009Q3

REPORT INFORMATION
  Report Type: 
  Country: None (occurrence: None)
  Receive Date: 20090820
  Receipt Date: 20090813
  Transmission Date: 20100115
  Serious: Yes (Hospitalization)
  Sender: FDA-Public Use
  Company Number: US-NOVOPROD-290502

PATIENT
  Sex: Female

DRUGS (2)
  1. NOVOLOG [Suspect]
     Indication: DIABETES MELLITUS
     Dosage: UNK, UNK
     Route: 058
  2. LEVEMIR [Suspect]
     Indication: DIABETES MELLITUS
     Dosage: UNK, UNK
     Route: 058

REACTIONS (1)
  - CHEST DISCOMFORT [None]
